FAERS Safety Report 4595221-1 (Version None)
Quarter: 2005Q1

REPORT INFORMATION
  Report Type: 
  Country: None (occurrence: None)
  Receive Date: 20050224
  Receipt Date: 20050214
  Transmission Date: 20050727
  Serious: Yes (Hospitalization, Other)
  Sender: FDA-Public Use
  Company Number: 2005029394

PATIENT
  Age: 35 Year
  Sex: Female
  Weight: 87.5442 kg

DRUGS (2)
  1. DEPO-PROVERA [Suspect]
     Indication: CONTRACEPTION
     Dosage: FITST INJECTION), INTRAMUSCULAR
     Route: 030
     Dates: start: 19961101, end: 19961101
  2. CELEBREX [Suspect]
     Indication: MYALGIA
     Dosage: 200 MG (100 MG, TWICE A DAY), ORAL
     Route: 048
     Dates: start: 20040301, end: 20041001

REACTIONS (15)
  - ABDOMINAL PAIN UPPER [None]
  - ANXIETY [None]
  - ASTHENIA [None]
  - BLOOD CHOLESTEROL INCREASED [None]
  - EYE DISORDER [None]
  - FALL [None]
  - HYPERTENSION [None]
  - JOINT DISLOCATION [None]
  - JOINT RANGE OF MOTION DECREASED [None]
  - LIMB DEFORMITY [None]
  - MUSCULAR WEAKNESS [None]
  - MYALGIA [None]
  - RETINAL DETACHMENT [None]
  - ROTATOR CUFF SYNDROME [None]
  - VITREOUS FLOATERS [None]
